FAERS Safety Report 8775702 (Version 1)
Quarter: 2012Q4

REPORT INFORMATION
  Report Type: 
  Country: ES (occurrence: ES)
  Receive Date: 20120905
  Receipt Date: 20120905
  Transmission Date: 20130627
  Serious: Yes (Death, Life-Threatening, Hospitalization)
  Sender: FDA-Public Use
  Company Number: ES-BRISTOL-MYERS SQUIBB COMPANY-16670127

PATIENT
  Age: 66 Year
  Sex: Male

DRUGS (6)
  1. ABATACEPT [Suspect]
     Indication: RHEUMATOID ARTHRITIS
     Dosage: 5 months ago. Last dose:27Apr12
     Route: 042
     Dates: start: 20120203
  2. METHOTREXATE [Suspect]
     Indication: RHEUMATOID ARTHRITIS
     Dates: start: 1999
  3. DEFLAZACORT [Suspect]
     Indication: RHEUMATOID ARTHRITIS
     Dates: start: 1999
  4. ADALIMUMAB [Suspect]
     Indication: RHEUMATOID ARTHRITIS
     Dates: start: 2003, end: 2007
  5. ETANERCEPT [Suspect]
     Indication: RHEUMATOID ARTHRITIS
     Dates: start: 200703, end: 20080909
  6. RITUXIMAB [Suspect]
     Dosage: 5 cycles: 1:17-Sep-2008; 2:06-Apr-2009; 3:12-Mar-2010; 4:19-Oct-2010; 5:06-May-2011
     Dates: start: 20080917, end: 20110506

REACTIONS (4)
  - Septic shock [Fatal]
  - Fall [Unknown]
  - Limb injury [Unknown]
  - Deep vein thrombosis [Unknown]
